FAERS Safety Report 21705373 (Version 2)
Quarter: 2022Q4

REPORT INFORMATION
  Report Type: Spontaneous
  Country: TN (occurrence: TN)
  Receive Date: 20221209
  Receipt Date: 20221224
  Transmission Date: 20230113
  Serious: Yes (Other)
  Sender: FDA-Public Use
  Company Number: TN-Accord-290836

PATIENT
  Age: 15 Year
  Sex: Female

DRUGS (1)
  1. ZOLEDRONIC ACID [Suspect]
     Active Substance: ZOLEDRONIC ACID
     Indication: Chronic recurrent multifocal osteomyelitis
     Dosage: 0.025 MG/KG (FIRST DOSE)
     Dates: start: 2018

REACTIONS (1)
  - Generalised tonic-clonic seizure [Recovered/Resolved]
